FAERS Safety Report 7556046-8 (Version None)
Quarter: 2011Q2

REPORT INFORMATION
  Report Type: 
  Country: None (occurrence: None)
  Receive Date: 20110620
  Receipt Date: 20110609
  Transmission Date: 20111010
  Serious: Yes (Hospitalization)
  Sender: FDA-Public Use
  Company Number: US-BIOGENIDEC-2011BI021275

PATIENT
  Age: 54 Year
  Sex: Female

DRUGS (3)
  1. AVONEX [Suspect]
     Indication: MULTIPLE SCLEROSIS
     Route: 030
     Dates: start: 20010101
  2. AVONEX [Suspect]
     Route: 030
  3. COPAXONE [Concomitant]
     Indication: MULTIPLE SCLEROSIS

REACTIONS (7)
  - LIMB CRUSHING INJURY [None]
  - ASTHENIA [None]
  - UPPER LIMB FRACTURE [None]
  - FALL [None]
  - PAIN IN EXTREMITY [None]
  - DYSPNOEA EXERTIONAL [None]
  - MEMORY IMPAIRMENT [None]
